FAERS Safety Report 23134387 (Version 2)
Quarter: 2023Q4

REPORT INFORMATION
  Report Type: Spontaneous
  Country: US (occurrence: US)
  Receive Date: 20231101
  Receipt Date: 20231113
  Transmission Date: 20240109
  Serious: Yes (Hospitalization)
  Sender: FDA-Public Use
  Company Number: US-TEVA-2023-US-2940316

PATIENT
  Age: 70 Year
  Sex: Female

DRUGS (2)
  1. METFORMIN [Suspect]
     Active Substance: METFORMIN HYDROCHLORIDE
     Indication: Diabetes mellitus
     Dosage: 2 GRAM DAILY; 1G TWICE DAILY
     Route: 065
  2. IBRUTINIB [Concomitant]
     Active Substance: IBRUTINIB
     Indication: Chronic lymphocytic leukaemia
     Route: 065

REACTIONS (4)
  - Lactic acidosis [Recovered/Resolved]
  - Respiratory alkalosis [Recovered/Resolved]
  - Acidosis hyperchloraemic [Recovered/Resolved]
  - Metabolic acidosis [Recovered/Resolved]
